FAERS Safety Report 5097967-8 (Version None)
Quarter: 2006Q3

REPORT INFORMATION
  Report Type: 
  Country: None (occurrence: None)
  Receive Date: 20060905
  Receipt Date: 20060823
  Transmission Date: 20061208
  Serious: Yes (Other)
  Sender: FDA-Public Use
  Company Number: GXKR2006CA05228

PATIENT
  Sex: Female

DRUGS (1)
  1. PARACETAMOL + CODEINE (NGX) (ACETAMINOPHEN (PARACETAMOL), CODEINE PHOS [Suspect]
     Indication: PAIN
     Dosage: 2 TABLETS, Q12H

REACTIONS (7)
  - CONSTIPATION [None]
  - DEATH NEONATAL [None]
  - DRUG EXPOSURE VIA BREAST MILK [None]
  - DRUG LEVEL ABOVE THERAPEUTIC [None]
  - DRUG TOXICITY [None]
  - METABOLIC DISORDER [None]
  - SOMNOLENCE [None]
